FAERS Safety Report 10193402 (Version 1)
Quarter: 2014Q2

REPORT INFORMATION
  Report Type: Spontaneous
  Country: US (occurrence: US)
  Receive Date: 20140524
  Receipt Date: 20140524
  Transmission Date: 20141212
  Serious: No
  Sender: FDA-Public Use
  Company Number: US-SA-2013SA122922

PATIENT
  Age: 63 Year
  Sex: Male

DRUGS (4)
  1. LANTUS SOLOSTAR [Suspect]
     Indication: TYPE 2 DIABETES MELLITUS
     Dosage: PRODUCT STARTS 1 MONTH DOSE:40 UNIT(S)
     Route: 051
  2. SOLOSTAR [Concomitant]
  3. HUMALOG [Suspect]
     Route: 065
  4. BYDUREON [Suspect]
     Route: 065

REACTIONS (6)
  - Dyspnoea [Unknown]
  - Dizziness [Unknown]
  - Chest discomfort [Unknown]
  - Heart rate increased [Unknown]
  - Hyperhidrosis [Unknown]
  - Adverse event [Unknown]
